FAERS Safety Report 12710272 (Version 3)
Quarter: 2016Q3

REPORT INFORMATION
  Report Type: Report from Study
  Country: IE (occurrence: IE)
  Receive Date: 20160902
  Receipt Date: 20160908
  Transmission Date: 20161109
  Serious: Yes (Hospitalization)
  Sender: FDA-Public Use
  Company Number: IE-ABBVIE-16K-229-1715744-00

PATIENT
  Age: 79 Year
  Sex: Male

DRUGS (2)
  1. DUODOPA [Suspect]
     Active Substance: CARBIDOPA\LEVODOPA
     Dosage: CASSETTE, CONTINUOUS
     Route: 050
     Dates: start: 20120702
  2. DUODOPA [Suspect]
     Active Substance: CARBIDOPA\LEVODOPA
     Indication: PARKINSON^S DISEASE
     Dosage: CASSETTE, CONTINUOUS
     Route: 050
     Dates: start: 20120626, end: 20120702

REACTIONS (1)
  - Implant site extravasation [Recovered/Resolved]

NARRATIVE: CASE EVENT DATE: 20160826
